FAERS Safety Report 19674953 (Version 1)
Quarter: 2021Q3

REPORT INFORMATION
  Report Type: Spontaneous
  Country: US (occurrence: US)
  Receive Date: 20210809
  Receipt Date: 20210809
  Transmission Date: 20211014
  Serious: Yes (Hospitalization)
  Sender: FDA-Public Use
  Company Number: None

PATIENT
  Age: 50 Year
  Sex: Female
  Weight: 93.6 kg

DRUGS (10)
  1. GABAPENTIN 100MG [Concomitant]
     Active Substance: GABAPENTIN
  2. CALCIUM [Concomitant]
     Active Substance: CALCIUM
  3. SIMVASTATIN 20MG [Concomitant]
     Active Substance: SIMVASTATIN
  4. MARIJUANA [Concomitant]
     Active Substance: CANNABIS SATIVA SUBSP. INDICA TOP
  5. FASLODEX [Concomitant]
     Active Substance: FULVESTRANT
  6. VENLAFAXINE ER 150MG [Concomitant]
     Active Substance: VENLAFAXINE HYDROCHLORIDE
  7. ARIPIPRAZOLE 30MG [Concomitant]
     Active Substance: ARIPIPRAZOLE
  8. PIQRAY [Suspect]
     Active Substance: ALPELISIB
     Indication: BREAST CANCER
     Route: 048
     Dates: start: 20210528
  9. OMEPRAZOLE 40MG [Concomitant]
     Active Substance: OMEPRAZOLE
  10. OXYBUTYNIN 5MG [Concomitant]
     Active Substance: OXYBUTYNIN

REACTIONS (1)
  - Hospitalisation [None]

NARRATIVE: CASE EVENT DATE: 20210809
